APPROVED DRUG PRODUCT: IRESSA
Active Ingredient: GEFITINIB
Strength: 250MG
Dosage Form/Route: TABLET;ORAL
Application: N021399 | Product #001
Applicant: ASTRAZENECA UK LTD
Approved: May 5, 2003 | RLD: No | RS: No | Type: DISCN